FAERS Safety Report 17997327 (Version 2)
Quarter: 2020Q3

REPORT INFORMATION
  Report Type: Report from Study
  Country: US (occurrence: US)
  Receive Date: 20200708
  Receipt Date: 20200716
  Transmission Date: 20201103
  Serious: Yes (Hospitalization)
  Sender: FDA-Public Use
  Company Number: US-SEATTLE GENETICS-2020SGN02897

PATIENT
  Age: 27 Year
  Sex: Female
  Weight: 59.87 kg

DRUGS (23)
  1. TUCATINIB [Suspect]
     Active Substance: TUCATINIB
     Dosage: 250 MG, BID
     Route: 048
     Dates: start: 20200506, end: 20200624
  2. CYCLOPHOSPHAMIDE. [Suspect]
     Active Substance: CYCLOPHOSPHAMIDE
     Indication: BREAST CANCER
  3. HYDROXYZINE [Concomitant]
     Active Substance: HYDROXYZINE HYDROCHLORIDE
     Dosage: 25 MG
     Route: 048
     Dates: start: 20200413
  4. PACLITAXEL. [Suspect]
     Active Substance: PACLITAXEL
     Indication: BREAST CANCER
     Dosage: 80 MG/M2, QWEEK
     Route: 042
     Dates: start: 20200408, end: 20200408
  5. PACLITAXEL ALBUMIN [Suspect]
     Active Substance: PACLITAXEL
     Dosage: 160 MG, QWEEK
     Route: 042
     Dates: start: 20200624, end: 20200624
  6. COMPAZINE                          /00013302/ [Concomitant]
     Active Substance: PROCHLORPERAZINE EDISYLATE
     Indication: NAUSEA
     Dosage: 10 MG
     Route: 048
     Dates: start: 20200408
  7. PERTUZUMAB. [Suspect]
     Active Substance: PERTUZUMAB
     Indication: BREAST CANCER
     Dosage: 840 MG, SINGLE
     Route: 042
     Dates: start: 20200408, end: 20200408
  8. ALLEGRA [Concomitant]
     Active Substance: FEXOFENADINE HYDROCHLORIDE
     Indication: SEASONAL ALLERGY
     Dosage: UNK
     Route: 048
     Dates: start: 2015
  9. ZOFRAN [Concomitant]
     Active Substance: ONDANSETRON HYDROCHLORIDE
     Indication: NAUSEA
     Dosage: 8 MG
     Route: 048
     Dates: start: 20200408
  10. DOXORUBICIN [Suspect]
     Active Substance: DOXORUBICIN
     Indication: BREAST CANCER
  11. TRASTUZUMAB. [Suspect]
     Active Substance: TRASTUZUMAB
     Dosage: 2 MG/KG, QWEEK
     Route: 042
     Dates: end: 20200624
  12. IMODIUM [Concomitant]
     Active Substance: LOPERAMIDE HYDROCHLORIDE
     Indication: DIARRHOEA
     Dosage: 2 MG
     Route: 048
     Dates: start: 20200408
  13. TUCATINIB [Suspect]
     Active Substance: TUCATINIB
     Indication: BREAST CANCER
     Dosage: 150 MG, BID
     Route: 048
     Dates: start: 20200408, end: 20200505
  14. TRASTUZUMAB. [Suspect]
     Active Substance: TRASTUZUMAB
     Indication: BREAST CANCER
     Dosage: 4 MG/KG, SINGLE
     Route: 042
     Dates: start: 20200408, end: 20200408
  15. PERTUZUMAB. [Suspect]
     Active Substance: PERTUZUMAB
     Dosage: 420 MG, Q3WEEKS
     Route: 042
     Dates: start: 20200610
  16. CLOBETASOL 0.05% [Concomitant]
     Active Substance: CLOBETASOL
     Indication: ECZEMA
     Dosage: 0.05 %
     Route: 061
     Dates: start: 20200415
  17. MELOXICAM. [Concomitant]
     Active Substance: MELOXICAM
     Dosage: UNK
     Route: 048
     Dates: start: 2020
  18. ATIVAN [Concomitant]
     Active Substance: LORAZEPAM
     Indication: NAUSEA
     Dosage: 1 MG
     Route: 048
     Dates: start: 20200508
  19. PEPCID [Concomitant]
     Active Substance: FAMOTIDINE
     Indication: PREMEDICATION
     Dosage: 20 MG, QWEEK
     Dates: start: 20200408
  20. ALBUTEROL                          /00139501/ [Concomitant]
     Active Substance: ALBUTEROL
     Indication: ASTHMA
     Dosage: UNK
     Dates: start: 2018
  21. DECADRON [Concomitant]
     Active Substance: DEXAMETHASONE
     Indication: NAUSEA
     Dosage: 4 MG, BID
     Dates: start: 20200528
  22. DECADRON [Concomitant]
     Active Substance: DEXAMETHASONE
     Dosage: 20 MG, QWEEK
     Dates: start: 20200408
  23. GOSERELIN [Concomitant]
     Active Substance: GOSERELIN
     Indication: CHEMOTHERAPY
     Dosage: UNK
     Dates: start: 20200624

REACTIONS (1)
  - Nausea [Recovered/Resolved]

NARRATIVE: CASE EVENT DATE: 20200627
